FAERS Safety Report 13966291 (Version 1)
Quarter: 2017Q3

REPORT INFORMATION
  Report Type: Spontaneous
  Country: US (occurrence: US)
  Receive Date: 20170913
  Receipt Date: 20170913
  Transmission Date: 20171128
  Serious: Yes (Other)
  Sender: FDA-Public Use
  Company Number: US-ABBVIE-17P-163-2096669-00

PATIENT
  Sex: Female
  Weight: 40.86 kg

DRUGS (1)
  1. CREON [Suspect]
     Active Substance: PANCRELIPASE AMYLASE\PANCRELIPASE LIPASE\PANCRELIPASE PROTEASE
     Indication: PRODUCT USED FOR UNKNOWN INDICATION
     Route: 048
     Dates: end: 201707

REACTIONS (3)
  - Pancreatectomy [Recovered/Resolved]
  - Weight decreased [Not Recovered/Not Resolved]
  - Pancreas islet cell transplant [Recovered/Resolved]

NARRATIVE: CASE EVENT DATE: 201601
